FAERS Safety Report 4503708-2 (Version None)
Quarter: 2004Q3

REPORT INFORMATION
  Report Type: 
  Country: None (occurrence: None)
  Receive Date: 20040928
  Receipt Date: 20040609
  Transmission Date: 20050211
  Serious: No
  Sender: FDA-Public Use
  Company Number: 04P-163-0263283-00

PATIENT
  Age: 34 Year
  Sex: Female
  Weight: 90.7194 kg

DRUGS (5)
  1. HUMIRA [Suspect]
     Indication: ANKYLOSING SPONDYLITIS
     Dosage: 40 MG, SUBCUTANEOUS
     Route: 058
     Dates: start: 20031101
  2. METHOTREXATE [Suspect]
     Indication: ANKYLOSING SPONDYLITIS
     Dosage: 1 IN 1 WK, PER ORAL
     Route: 048
     Dates: start: 20040401, end: 20040401
  3. TENTESA [Concomitant]
  4. METRONIDAZOLE [Concomitant]
  5. FOLIC ACID [Concomitant]

REACTIONS (2)
  - NASOPHARYNGITIS [None]
  - STOMATITIS [None]
